FAERS Safety Report 9786379 (Version 1)
Quarter: 2013Q4

REPORT INFORMATION
  Report Type: Spontaneous
  Country: US (occurrence: US)
  Receive Date: 20131227
  Receipt Date: 20131227
  Transmission Date: 20140711
  Serious: Yes (Other)
  Sender: FDA-Public Use
  Company Number: US-PFIZER INC-2013366163

PATIENT
  Age: 58 Year
  Sex: Female

DRUGS (8)
  1. ONDANSETRON [Suspect]
     Indication: PROPHYLAXIS OF NAUSEA AND VOMITING
     Dosage: 4 MG, UNK
     Route: 042
  2. ONDANSETRON [Suspect]
     Dosage: 4 MG, UNK
     Route: 042
  3. MIDAZOLAM [Concomitant]
     Indication: GENERAL ANAESTHESIA
  4. FENTANYL [Concomitant]
     Indication: GENERAL ANAESTHESIA
     Dosage: UNK
  5. PROPOFOL [Concomitant]
     Indication: GENERAL ANAESTHESIA
  6. ISOFLURANE [Concomitant]
     Indication: GENERAL ANAESTHESIA
  7. NITROUS OXIDE [Concomitant]
     Indication: GENERAL ANAESTHESIA
  8. NALOXONE [Concomitant]
     Indication: MUSCLE RIGIDITY
     Dosage: 40 UG, TWICE

REACTIONS (1)
  - Toxic encephalopathy [Recovered/Resolved]
